FAERS Safety Report 18959371 (Version 1)
Quarter: 2021Q1

REPORT INFORMATION
  Report Type: Spontaneous
  Country: PE (occurrence: PE)
  Receive Date: 20210302
  Receipt Date: 20210302
  Transmission Date: 20210420
  Serious: Yes (Death, Other)
  Sender: FDA-Public Use
  Company Number: PE-BAYER-2021-083931

PATIENT
  Age: 33 Year
  Sex: Male
  Weight: 54.42 kg

DRUGS (5)
  1. INSULIN [Concomitant]
     Active Substance: INSULIN NOS
     Dosage: UNK
     Dates: start: 200905, end: 20200117
  2. PYRAZINAMIDE. [Concomitant]
     Active Substance: PYRAZINAMIDE
     Dosage: UNK
     Dates: start: 20191008, end: 20200117
  3. AVELOX [Suspect]
     Active Substance: MOXIFLOXACIN HYDROCHLORIDE
     Indication: TUBERCULOSIS
     Dosage: 400 MG, QD
     Route: 048
     Dates: start: 20191008, end: 20191216
  4. PYRIDOXIN [Concomitant]
     Active Substance: PYRIDOXINE
     Dosage: UNK
     Dates: start: 20191008, end: 20200117
  5. DELAMANID [Suspect]
     Active Substance: DELAMANID
     Indication: TUBERCULOSIS
     Dosage: 100 MG, BID
     Route: 048
     Dates: start: 20191008, end: 20200117

REACTIONS (15)
  - Bronchospasm [Fatal]
  - Hypocalcaemia [Fatal]
  - Blood creatinine decreased [Fatal]
  - Headache [Fatal]
  - Skin hyperpigmentation [Fatal]
  - Hypomagnesaemia [Fatal]
  - Electrocardiogram QT prolonged [Fatal]
  - Alcohol poisoning [Fatal]
  - Haemoptysis [Fatal]
  - Hypoglycaemia [Fatal]
  - Pulmonary fibrosis [None]
  - Chest pain [Fatal]
  - Lymphadenopathy [Fatal]
  - Rash [Fatal]
  - Palpitations [Fatal]

NARRATIVE: CASE EVENT DATE: 20191015
